FAERS Safety Report 9271592 (Version 1)
Quarter: 2013Q2

REPORT INFORMATION
  Report Type: Spontaneous
  Country: IT (occurrence: IT)
  Receive Date: 20130506
  Receipt Date: 20130506
  Transmission Date: 20140414
  Serious: Yes (Hospitalization)
  Sender: FDA-Public Use
  Company Number: IT-PFIZER INC-2013137753

PATIENT
  Age: 62 Year
  Sex: Female

DRUGS (2)
  1. CARBOPLATIN [Suspect]
     Indication: OVARIAN STROMAL CANCER
     Dosage: 530 MG, TOTAL DOSE
     Route: 042
     Dates: start: 20121204, end: 20121204
  2. TAXOL [Suspect]
     Indication: OVARIAN STROMAL CANCER
     Dosage: 230 MG, TOTAL DOSE
     Route: 042
     Dates: start: 20121204, end: 20121204

REACTIONS (1)
  - Pancytopenia [Recovered/Resolved]
